FAERS Safety Report 5099497-6 (Version None)
Quarter: 2006Q3

REPORT INFORMATION
  Report Type: 
  Country: None (occurrence: None)
  Receive Date: 20060908
  Receipt Date: 20060830
  Transmission Date: 20061208
  Serious: Yes (Hospitalization)
  Sender: FDA-Public Use
  Company Number: PHBS2006BR13278

PATIENT
  Age: 68 Year
  Sex: Female

DRUGS (4)
  1. TEGRETOL [Suspect]
     Indication: CONVULSION
     Dosage: 600 MG/DAY
     Route: 048
  2. TEGRETOL [Suspect]
     Dosage: 600 MG/DAY
     Route: 048
     Dates: start: 20060801, end: 20060801
  3. TEGRETOL [Suspect]
     Route: 048
     Dates: start: 20060801
  4. LEXOTAN [Concomitant]
     Dosage: 3 MG/DAY
     Route: 048

REACTIONS (7)
  - CONVULSION [None]
  - COUGH [None]
  - DYSKINESIA [None]
  - NYSTAGMUS [None]
  - TUBERCULOSIS [None]
  - VERTIGO [None]
  - VOMITING [None]
